FAERS Safety Report 17877086 (Version 9)
Quarter: 2020Q4

REPORT INFORMATION
  Report Type: Report from Study
  Country: JP (occurrence: JP)
  Receive Date: 20200609
  Receipt Date: 20201201
  Transmission Date: 20210113
  Serious: Yes (Hospitalization)
  Sender: FDA-Public Use
  Company Number: JP-JNJFOC-20200518923

PATIENT
  Age: 60 Year
  Sex: Female
  Weight: 49.6 kg

DRUGS (27)
  1. PLACEBO [Suspect]
     Active Substance: UNSPECIFIED INGREDIENT
     Dosage: WEEK 16 (1)
     Route: 058
     Dates: start: 20191206
  2. GASMOTIN [Concomitant]
     Active Substance: MOSAPRIDE CITRATE
     Indication: GASTROINTESTINAL DISORDER THERAPY
     Route: 048
     Dates: start: 20070203, end: 20190913
  3. EXCELASE [Concomitant]
     Active Substance: PANCRELIPASE
     Indication: GASTRITIS
     Dosage: 1 TABLET
     Route: 048
     Dates: start: 20200326
  4. CEREKINON [Concomitant]
     Active Substance: TRIMEBUTINE
     Indication: GASTRITIS
     Route: 048
     Dates: start: 20200327, end: 20200424
  5. PREDNISOLONE. [Concomitant]
     Active Substance: PREDNISOLONE
     Route: 048
     Dates: start: 20200229, end: 20200424
  6. TAKECAB [Concomitant]
     Active Substance: VONOPRAZAN FUMARATE
     Indication: PROPHYLAXIS AGAINST GASTROINTESTINAL ULCER
     Route: 048
     Dates: start: 20170603
  7. ACTONEL [Concomitant]
     Active Substance: RISEDRONATE SODIUM
     Indication: OSTEOPOROSIS
     Route: 048
     Dates: start: 20110320
  8. MIYA-BM [Concomitant]
     Active Substance: CLOSTRIDIUM BUTYRICUM SPORES STRAIN M-55
     Indication: GASTRITIS
     Route: 048
     Dates: start: 20200403
  9. AZANIN [Concomitant]
     Active Substance: AZATHIOPRINE
     Indication: SYSTEMIC LUPUS ERYTHEMATOSUS
     Route: 048
     Dates: start: 20181005
  10. LOQOA [Concomitant]
     Indication: SYSTEMIC LUPUS ERYTHEMATOSUS
     Route: 062
     Dates: start: 20170630
  11. CELECOXIB. [Concomitant]
     Active Substance: CELECOXIB
     Indication: SYSTEMIC LUPUS ERYTHEMATOSUS
     Route: 048
     Dates: start: 20190405
  12. PLETAAL [Concomitant]
     Active Substance: CILOSTAZOL
     Indication: VERTIGO
     Route: 048
     Dates: start: 20191009
  13. STROCAIN                           /00130301/ [Concomitant]
     Indication: GASTRITIS
     Route: 048
     Dates: start: 20200311, end: 20200325
  14. BERIZYM                            /01945301/ [Concomitant]
     Indication: GASTRITIS
     Route: 048
     Dates: start: 20200327, end: 20200402
  15. BUSCOPAN [Concomitant]
     Active Substance: BUTYLSCOPOLAMINE BROMIDE
     Route: 048
     Dates: start: 20200327
  16. PREDNISOLONE. [Concomitant]
     Active Substance: PREDNISOLONE
     Route: 048
     Dates: start: 20200425
  17. ALFAROL [Concomitant]
     Active Substance: ALFACALCIDOL
     Indication: OSTEOPOROSIS
     Route: 048
     Dates: start: 20070208
  18. COSPANON [Concomitant]
     Active Substance: FLOPROPIONE
     Indication: GASTRITIS
     Route: 048
     Dates: start: 20200403
  19. PREDNISOLONE. [Concomitant]
     Active Substance: PREDNISOLONE
     Indication: SYSTEMIC LUPUS ERYTHEMATOSUS
     Route: 048
     Dates: start: 20180203
  20. GASMOTIN [Concomitant]
     Active Substance: MOSAPRIDE CITRATE
     Route: 048
     Dates: start: 20191206, end: 20200424
  21. DEPAS [Concomitant]
     Indication: INSOMNIA
     Route: 048
     Dates: start: 20190405
  22. MAGNESIUM OXIDE. [Concomitant]
     Active Substance: MAGNESIUM OXIDE
     Indication: CONSTIPATION
     Route: 048
     Dates: start: 20070209
  23. CERCINE [Concomitant]
     Active Substance: DIAZEPAM
     Indication: VERTIGO
     Route: 048
     Dates: start: 20200219, end: 20200221
  24. BUSCOPAN [Concomitant]
     Active Substance: BUTYLSCOPOLAMINE BROMIDE
     Indication: ABDOMINAL PAIN UPPER
     Route: 048
     Dates: start: 20190913, end: 20190913
  25. PLACEBO [Suspect]
     Active Substance: UNSPECIFIED INGREDIENT
     Indication: SYSTEMIC LUPUS ERYTHEMATOSUS
     Dosage: WEEK 8 (1)
     Route: 058
     Dates: start: 20191011
  26. PLACEBO [Suspect]
     Active Substance: UNSPECIFIED INGREDIENT
     Dosage: WEEK 24 (1)
     Route: 058
     Dates: start: 20200131
  27. ANCHUSANRYO [Concomitant]
     Indication: GASTRITIS
     Route: 048
     Dates: start: 20200409, end: 20200424

REACTIONS (1)
  - Diffuse large B-cell lymphoma [Not Recovered/Not Resolved]

NARRATIVE: CASE EVENT DATE: 20200307
